FAERS Safety Report 22536314 (Version 1)
Quarter: 2023Q2

REPORT INFORMATION
  Report Type: Spontaneous
  Country: US (occurrence: US)
  Receive Date: 20230608
  Receipt Date: 20230608
  Transmission Date: 20230721
  Serious: No
  Sender: FDA-Public Use
  Company Number: US-BAUSCH-BL-2023-008502

PATIENT
  Sex: Female

DRUGS (2)
  1. MYSOLINE [Suspect]
     Active Substance: PRIMIDONE
     Indication: Tremor
     Route: 065
  2. MYSOLINE [Suspect]
     Active Substance: PRIMIDONE
     Indication: Bipolar disorder

REACTIONS (2)
  - Tremor [Unknown]
  - Product use issue [Unknown]

NARRATIVE: CASE EVENT DATE: 20230101
